FAERS Safety Report 21668438 (Version 1)
Quarter: 2022Q4

REPORT INFORMATION
  Report Type: Spontaneous
  Country: US (occurrence: None)
  Receive Date: 20221201
  Receipt Date: 20221201
  Transmission Date: 20230113
  Serious: Yes (Other)
  Sender: FDA-Public Use
  Company Number: None

PATIENT
  Age: 29 Year
  Sex: Female
  Weight: 134.1 kg

DRUGS (9)
  1. .DELTA.8-TETRAHYDROCANNABINOL\HERBALS [Suspect]
     Active Substance: .DELTA.8-TETRAHYDROCANNABINOL\HERBALS
     Indication: Substance use
     Dates: start: 20221122, end: 20221124
  2. CYMBALTA [Concomitant]
     Active Substance: DULOXETINE HYDROCHLORIDE
  3. TRAZODONE [Concomitant]
     Active Substance: TRAZODONE HYDROCHLORIDE
  4. LAMOTRIGINE [Concomitant]
     Active Substance: LAMOTRIGINE
  5. FERROUS SULFATE [Concomitant]
     Active Substance: FERROUS SULFATE
  6. Roprinole [Concomitant]
  7. VITAMIN C [Concomitant]
     Active Substance: ASCORBIC ACID
  8. TYLENOL [Concomitant]
     Active Substance: ACETAMINOPHEN
  9. IBUPROFEN [Concomitant]
     Active Substance: IBUPROFEN

REACTIONS (6)
  - Disorientation [None]
  - Muscle twitching [None]
  - Dysarthria [None]
  - Hallucination [None]
  - Hangover [None]
  - Headache [None]

NARRATIVE: CASE EVENT DATE: 20221124
